FAERS Safety Report 24130697 (Version 2)
Quarter: 2024Q3

REPORT INFORMATION
  Report Type: Report from Study
  Country: CA (occurrence: CA)
  Receive Date: 20240724
  Receipt Date: 20240725
  Transmission Date: 20241017
  Serious: Yes (Hospitalization, Other)
  Sender: ABBVIE
  Company Number: CA-ABBVIE-5811619

PATIENT
  Age: 35 Year
  Sex: Female

DRUGS (5)
  1. VENCLEXTA [Suspect]
     Active Substance: VENETOCLAX
     Indication: Acute myeloid leukaemia refractory
     Dosage: FORM STRENGTH: 100 MILLIGRAM, FOUR TIMES PER DAY, DURATION: FOR 28 DAYS
     Route: 048
     Dates: start: 20240423, end: 202406
  2. ESCITALOPRAM [Concomitant]
     Active Substance: ESCITALOPRAM OXALATE
     Indication: Depression
     Route: 048
  3. MEDROXYPROGESTERONE [Concomitant]
     Active Substance: MEDROXYPROGESTERONE
     Indication: Product used for unknown indication
     Route: 048
  4. LORAZEPAM [Concomitant]
     Active Substance: LORAZEPAM
     Indication: Depression
     Dosage: 0.5 MG TWO TIMES PER DAY, DURATION:  PRN, SUBLINGUAL, BID DEPRESSION
     Route: 060
  5. AZACITIDINE [Concomitant]
     Active Substance: AZACITIDINE
     Indication: Product used for unknown indication

REACTIONS (3)
  - Allogenic stem cell transplantation [Recovering/Resolving]
  - Hospitalisation [Unknown]
  - Off label use [Unknown]

NARRATIVE: CASE EVENT DATE: 20240101
